FAERS Safety Report 4779342-6 (Version None)
Quarter: 2005Q3

REPORT INFORMATION
  Report Type: 
  Country: None (occurrence: None)
  Receive Date: 20050914
  Receipt Date: 20050706
  Transmission Date: 20060218
  Serious: Yes (Other)
  Sender: FDA-Public Use
  Company Number: 410174

PATIENT
  Sex: Female

DRUGS (3)
  1. BONIVA [Suspect]
     Dosage: ORAL
     Route: 048
     Dates: start: 20050704
  2. ZANTAC [Concomitant]
  3. UNSPECIFIED MEDICATIONS (GENERIC UNKNOWN) [Concomitant]

REACTIONS (2)
  - CHEST PAIN [None]
  - PAIN IN JAW [None]
